FAERS Safety Report 7056243-4 (Version None)
Quarter: 2010Q4

REPORT INFORMATION
  Report Type: 
  Country: None (occurrence: None)
  Receive Date: 20101021
  Receipt Date: 20101015
  Transmission Date: 20110411
  Serious: Yes (Other)
  Sender: FDA-Public Use
  Company Number: A0887112A

PATIENT
  Age: 38 Year
  Sex: Female

DRUGS (1)
  1. BUPROPION HYDROCHLORIDE [Suspect]
     Indication: PRODUCT USED FOR UNKNOWN INDICATION
     Route: 048
     Dates: start: 20000101

REACTIONS (3)
  - DRUG ADMINISTRATION ERROR [None]
  - HYPOAESTHESIA ORAL [None]
  - PARKINSONISM [None]
